FAERS Safety Report 15501079 (Version 7)
Quarter: 2019Q1

REPORT INFORMATION
  Report Type: Report from Study
  Country: US (occurrence: US)
  Receive Date: 20181015
  Receipt Date: 20190325
  Transmission Date: 20190417
  Serious: Yes (Hospitalization)
  Sender: FDA-Public Use
  Company Number: US-JNJFOC-20180913972

PATIENT
  Age: 75 Year
  Sex: Male
  Weight: 121.56 kg

DRUGS (1)
  1. STELARA [Suspect]
     Active Substance: USTEKINUMAB
     Indication: PSORIASIS
     Route: 058
     Dates: start: 201104

REACTIONS (3)
  - Pneumonia [Recovered/Resolved]
  - Femur fracture [Recovered/Resolved with Sequelae]
  - Vocal cord paralysis [Recovered/Resolved with Sequelae]

NARRATIVE: CASE EVENT DATE: 20180910
